FAERS Safety Report 5527885-X (Version None)
Quarter: 2007Q4

REPORT INFORMATION
  Report Type: 
  Country: None (occurrence: None)
  Receive Date: 20071128
  Receipt Date: 20071123
  Transmission Date: 20080405
  Serious: Yes (Death)
  Sender: FDA-Public Use
  Company Number: CN-JNJFOC-20071108413

PATIENT
  Sex: Male
  Weight: 55 kg

DRUGS (3)
  1. ITRACONAZOLE [Suspect]
     Route: 042
  2. ITRACONAZOLE [Suspect]
     Indication: PULMONARY MYCOSIS
     Route: 042
  3. ITRACONAZOLE [Suspect]
     Route: 048

REACTIONS (1)
  - HAEMOPTYSIS [None]
